FAERS Safety Report 5554672-9 (Version None)
Quarter: 2007Q4

REPORT INFORMATION
  Report Type: 
  Country: None (occurrence: None)
  Receive Date: 20071211
  Receipt Date: 20071211
  Transmission Date: 20080405
  Serious: No
  Sender: FDA-Public Use
  Company Number: None

PATIENT

DRUGS (1)
  1. BETAMETHASONE [Suspect]

REACTIONS (10)
  - BONE PAIN [None]
  - CHEST DISCOMFORT [None]
  - DISORIENTATION [None]
  - DYSPNOEA [None]
  - HYPOAESTHESIA [None]
  - ILL-DEFINED DISORDER [None]
  - MEMORY IMPAIRMENT [None]
  - MOVEMENT DISORDER [None]
  - PALPITATIONS [None]
  - POOR QUALITY SLEEP [None]
